FAERS Safety Report 8387784-5 (Version None)
Quarter: 2012Q2

REPORT INFORMATION
  Report Type: 
  Country: None (occurrence: None)
  Receive Date: 20120525
  Receipt Date: 20120518
  Transmission Date: 20120825
  Serious: Yes (Hospitalization)
  Sender: FDA-Public Use
  Company Number: GB-VIIV HEALTHCARE LIMITED-B0799910A

PATIENT
  Age: 6 Year
  Sex: Male

DRUGS (3)
  1. ABACAVIR [Suspect]
     Indication: HIV INFECTION
     Dosage: 300MG PER DAY
     Route: 065
  2. LAMIVUDINE (EPIVIR HBV) [Concomitant]
  3. ETRAVIRINE [Concomitant]

REACTIONS (3)
  - COMA SCALE ABNORMAL [None]
  - HYPERTENSION [None]
  - HYPERSENSITIVITY [None]
